FAERS Safety Report 24995269 (Version 1)
Quarter: 2025Q1

REPORT INFORMATION
  Report Type: Spontaneous
  Country: KR (occurrence: KR)
  Receive Date: 20250221
  Receipt Date: 20250221
  Transmission Date: 20250409
  Serious: Yes (Disabling)
  Sender: PFIZER
  Company Number: KR-PFIZER INC-202500039347

PATIENT
  Age: 6 Year
  Sex: Female

DRUGS (1)
  1. METHOTREXATE SODIUM [Suspect]
     Active Substance: METHOTREXATE SODIUM
     Dosage: 9 G, 1X/DAY
     Dates: start: 20220328, end: 20220328

REACTIONS (3)
  - Blood bilirubin increased [Recovering/Resolving]
  - Pyrexia [Recovering/Resolving]
  - Hepatic enzyme increased [Recovering/Resolving]

NARRATIVE: CASE EVENT DATE: 20220329
